FAERS Safety Report 23286812 (Version 1)
Quarter: 2023Q4

REPORT INFORMATION
  Report Type: Spontaneous
  Country: US (occurrence: US)
  Receive Date: 20231212
  Receipt Date: 20231212
  Transmission Date: 20240110
  Serious: Yes (Death, Other)
  Sender: FDA-Public Use
  Company Number: US-BRISTOL-MYERS SQUIBB COMPANY-2023-178794

PATIENT
  Age: 66 Year
  Sex: Male
  Weight: 122.47 kg

DRUGS (1)
  1. NULOJIX [Suspect]
     Active Substance: BELATACEPT
     Indication: Prophylaxis against transplant rejection
     Route: 041
     Dates: start: 202209

REACTIONS (1)
  - Death [Fatal]

NARRATIVE: CASE EVENT DATE: 20231119
